FAERS Safety Report 9837275 (Version 2)
Quarter: 2014Q1

REPORT INFORMATION
  Report Type: Spontaneous
  Country: FR (occurrence: FR)
  Receive Date: 20140123
  Receipt Date: 20140123
  Transmission Date: 20141002
  Serious: Yes (Hospitalization)
  Sender: FDA-Public Use
  Company Number: FR-SANOFI-AVENTIS-2013SA074168

PATIENT
  Age: 78 Year
  Sex: Female

DRUGS (8)
  1. KARDEGIC [Suspect]
     Indication: PROPHYLAXIS
     Route: 048
     Dates: start: 201304, end: 20130629
  2. PLAVIX [Suspect]
     Indication: PROPHYLAXIS
     Route: 048
     Dates: start: 201304, end: 20130629
  3. PLAVIX [Suspect]
     Indication: PROPHYLAXIS
     Route: 048
     Dates: start: 20130706
  4. TWYNSTA [Concomitant]
     Dosage: STRENGTH: 40MG/5MG
     Route: 048
  5. ATENOLOL [Concomitant]
     Dosage: STRENGTH: 50 MG
     Route: 048
  6. FUROSEMIDE [Concomitant]
     Dosage: STRENGTH: 20 MG
     Route: 048
  7. IXPRIM [Concomitant]
     Dosage: STRENGTH: 37MG/325MG
     Route: 048
  8. ATARAX [Concomitant]
     Dosage: STRENGTH: 25 MG
     Route: 048

REACTIONS (9)
  - Dermatomyositis [Recovering/Resolving]
  - Anaphylactoid reaction [Recovered/Resolved]
  - Face oedema [Recovered/Resolved]
  - Eczema [Recovered/Resolved]
  - Oral discomfort [Recovered/Resolved]
  - Arthralgia [Recovered/Resolved]
  - Respiratory disorder [Recovered/Resolved]
  - Rash erythematous [Recovered/Resolved]
  - Erythema [Recovering/Resolving]
